FAERS Safety Report 9036167 (Version 1)
Quarter: 2013Q1

REPORT INFORMATION
  Report Type: Spontaneous
  Country: US (occurrence: US)
  Receive Date: 20130129
  Receipt Date: 20130129
  Transmission Date: 20140127
  Serious: No
  Sender: FDA-Public Use
  Company Number: US-ABBOTT-12P-163-0924277-00

PATIENT
  Age: 57 Year
  Sex: Female
  Weight: 83.99 kg

DRUGS (8)
  1. HUMIRA 40 MG/ 0.8 ML PRE-FILLED SYRINGE [Suspect]
     Indication: PSORIATIC ARTHROPATHY
     Dates: start: 2009
  2. BONIVA [Concomitant]
     Indication: OSTEOPOROSIS PROPHYLAXIS
  3. UNKNOWN MEDICATION [Concomitant]
     Indication: GASTROOESOPHAGEAL REFLUX DISEASE
  4. LYRICA [Concomitant]
     Indication: FIBROMYALGIA
  5. UNKNOWN MEDICATION [Concomitant]
     Indication: INTERVERTEBRAL DISC PROTRUSION
  6. UNKNOWN MEDICATION [Concomitant]
     Indication: MUSCLE SPASMS
  7. UNKNOWN MEDICATION [Concomitant]
     Indication: PAIN
  8. UNKNOWN MEDICATION [Concomitant]
     Indication: INTERVERTEBRAL DISC PROTRUSION

REACTIONS (1)
  - Influenza [Recovered/Resolved]
